FAERS Safety Report 8085421-0 (Version None)
Quarter: 2012Q1

REPORT INFORMATION
  Report Type: 
  Country: None (occurrence: None)
  Receive Date: 20120128
  Receipt Date: 20110503
  Transmission Date: 20120608
  Serious: Yes (Hospitalization)
  Sender: FDA-Public Use
  Company Number: US-ABBOTT-11P-163-0695378-00

PATIENT
  Sex: Female
  Weight: 74.002 kg

DRUGS (5)
  1. HUMIRA [Suspect]
     Indication: RHEUMATOID ARTHRITIS
     Dates: start: 20101101, end: 20110207
  2. HUMIRA [Suspect]
     Indication: RHEUMATOID ARTHRITIS
     Dates: start: 20050101, end: 20101001
  3. RESTASIS [Concomitant]
     Indication: DRY EYE
     Route: 047
  4. CETIRIZINE [Concomitant]
     Indication: HYPERSENSITIVITY
  5. CITRACAL [Concomitant]
     Indication: PRODUCT USED FOR UNKNOWN INDICATION
     Dosage: 2 BID

REACTIONS (11)
  - INJECTION SITE PAPULE [None]
  - MUSCULOSKELETAL STIFFNESS [None]
  - INJECTION SITE PRURITUS [None]
  - COUGH [None]
  - GAIT DISTURBANCE [None]
  - URTICARIA [None]
  - FATIGUE [None]
  - DRUG DOSE OMISSION [None]
  - PNEUMONIA [None]
  - INJECTION SITE WARMTH [None]
  - INJECTION SITE ERYTHEMA [None]
